FAERS Safety Report 19807407 (Version 6)
Quarter: 2021Q4

REPORT INFORMATION
  Report Type: Spontaneous
  Country: ES (occurrence: ES)
  Receive Date: 20210908
  Receipt Date: 20211129
  Transmission Date: 20220304
  Serious: Yes (Hospitalization, Other)
  Sender: FDA-Public Use
  Company Number: ES-DSJP-DSE-2021-107933

PATIENT
  Age: 70 Year
  Sex: Female
  Weight: 57 kg

DRUGS (4)
  1. OLMESARTAN MEDOXOMIL [Suspect]
     Active Substance: OLMESARTAN MEDOXOMIL
     Indication: Hypertension
     Dosage: UNK UNK, UNKNOWN (SINCE ONE YEAR BEFORE)
     Route: 048
  2. OLMESARTAN MEDOXOMIL [Suspect]
     Active Substance: OLMESARTAN MEDOXOMIL
     Indication: Hypertension
     Dosage: UNK
     Route: 065
  3. OLMESARTAN MEDOXOMIL [Suspect]
     Active Substance: OLMESARTAN MEDOXOMIL
     Dosage: UNK
     Route: 048
  4. AMLODIPIN                          /00972401/ [Concomitant]
     Indication: Hypertension
     Dosage: UNK

REACTIONS (13)
  - Malabsorption [Recovered/Resolved]
  - Hypotension [Unknown]
  - Diarrhoea [Unknown]
  - Mucosal dryness [Recovered/Resolved]
  - Weight decreased [Unknown]
  - Dyspepsia [Recovered/Resolved]
  - Dry skin [Recovered/Resolved]
  - Decreased appetite [Unknown]
  - Chronic gastritis [Unknown]
  - Pallor [Recovered/Resolved]
  - Asthenia [Unknown]
  - Abdominal pain [Unknown]
  - Colitis microscopic [Recovering/Resolving]
